FAERS Safety Report 21706784 (Version 3)
Quarter: 2022Q4

REPORT INFORMATION
  Report Type: Spontaneous
  Country: US (occurrence: US)
  Receive Date: 20221209
  Receipt Date: 20221229
  Transmission Date: 20230113
  Serious: No
  Sender: FDA-Public Use
  Company Number: US-002147023-NVSC2022US286520

PATIENT
  Age: 4 Year
  Sex: Male

DRUGS (3)
  1. MEKINIST [Suspect]
     Active Substance: TRAMETINIB DIMETHYL SULFOXIDE
     Indication: Brain neoplasm malignant
     Dosage: 0.5 MG, QD
     Route: 048
     Dates: start: 20221117
  2. MEKINIST [Suspect]
     Active Substance: TRAMETINIB DIMETHYL SULFOXIDE
     Dosage: 0.5 MG, QD (BY MOUTH DAILY ON MONDAY, TUESDAY, THURSDAY, FRIDAY AND SUNDAY)
     Route: 048
     Dates: start: 202212
  3. MEKINIST [Suspect]
     Active Substance: TRAMETINIB DIMETHYL SULFOXIDE
     Dosage: 1 MG, QD (BY MOUTH DAILY ON SATURDAY AND WEDNESDAY)
     Route: 048

REACTIONS (3)
  - Diarrhoea [Recovering/Resolving]
  - Product use in unapproved indication [Unknown]
  - Rash [Unknown]

NARRATIVE: CASE EVENT DATE: 20221117
